FAERS Safety Report 14331749 (Version 1)
Quarter: 2017Q4

REPORT INFORMATION
  Report Type: Report from Study
  Country: FR (occurrence: FR)
  Receive Date: 20171228
  Receipt Date: 20171228
  Transmission Date: 20180321
  Serious: Yes (Life-Threatening)
  Sender: FDA-Public Use
  Company Number: FR-ROCHE-2046479

PATIENT
  Age: 69 Year
  Sex: Female
  Weight: 53 kg

DRUGS (4)
  1. CELECTOL [Concomitant]
     Active Substance: CELIPROLOL HYDROCHLORIDE
     Route: 065
  2. TRASTUZUMAB. [Suspect]
     Active Substance: TRASTUZUMAB
     Indication: HER-2 POSITIVE BREAST CANCER
     Dosage: ON 15/FEB/2013, SHE RECEIVED THE MOST RECENT DOSE OF TRASTUZUMAB PRIOR TO ONSET OF CARDIAC ARREST.
     Route: 042
     Dates: start: 20130215
  3. FLECAINE [Concomitant]
     Active Substance: FLECAINIDE
  4. PERTUZUMAB. [Suspect]
     Active Substance: PERTUZUMAB
     Indication: HER-2 POSITIVE BREAST CANCER
     Dosage: ON 15/FEB/2013, SHE RECEIVED THE MOST RECENT DOSE OF PERTUZUMAB PRIOR TO ONSET OF CARDIAC ARREST.
     Route: 042
     Dates: start: 20130215

REACTIONS (1)
  - Cardiac arrest [Recovered/Resolved]

NARRATIVE: CASE EVENT DATE: 20160307
